FAERS Safety Report 25312980 (Version 1)
Quarter: 2025Q2

REPORT INFORMATION
  Report Type: Spontaneous
  Country: CN (occurrence: CN)
  Receive Date: 20250514
  Receipt Date: 20250514
  Transmission Date: 20250716
  Serious: Yes (Other)
  Sender: PFIZER
  Company Number: CN-PFIZER INC-PV202500055697

PATIENT
  Age: 12 Year
  Sex: Male

DRUGS (20)
  1. METHOTREXATE SODIUM [Suspect]
     Active Substance: METHOTREXATE SODIUM
     Indication: Blastic plasmacytoid dendritic cell neoplasia
     Dosage: 1 G/M2, DAILY
     Dates: start: 20230515, end: 20230515
  2. METHOTREXATE SODIUM [Suspect]
     Active Substance: METHOTREXATE SODIUM
     Dosage: 1 G/M2, DAILY
     Dates: start: 20230623, end: 20230623
  3. METHOTREXATE SODIUM [Suspect]
     Active Substance: METHOTREXATE SODIUM
     Dosage: 1 G/M2, DAILY
     Dates: start: 20230709, end: 20230709
  4. METHOTREXATE SODIUM [Suspect]
     Active Substance: METHOTREXATE SODIUM
     Dosage: 1 G/M2, DAILY
     Dates: start: 20230814, end: 20230814
  5. DEXAMETHASONE [Concomitant]
     Active Substance: DEXAMETHASONE
     Dosage: 10 MG, DAILY
     Dates: start: 20230511, end: 20230514
  6. DEXAMETHASONE [Concomitant]
     Active Substance: DEXAMETHASONE
     Dosage: 40 MG, DAILY
     Dates: start: 20230515, end: 20230518
  7. VENETOCLAX [Concomitant]
     Active Substance: VENETOCLAX
     Dosage: 100 MG, DAILY
     Dates: start: 20230515, end: 20230515
  8. VENETOCLAX [Concomitant]
     Active Substance: VENETOCLAX
     Dosage: 200 MG, DAILY
     Dates: start: 20230516, end: 20230516
  9. VENETOCLAX [Concomitant]
     Active Substance: VENETOCLAX
     Dosage: 400 MG, DAILY, DAY 3-28
     Dates: start: 20230517, end: 20230611
  10. PREDNISONE ACETATE [Concomitant]
     Active Substance: PREDNISONE ACETATE
     Dosage: 60 MG, DAILY
     Dates: start: 20230515, end: 20230521
  11. PREDNISONE ACETATE [Concomitant]
     Active Substance: PREDNISONE ACETATE
     Dosage: 60 MG, DAILY, D5 TO 28
     Dates: start: 20230519, end: 20230611
  12. VINCRISTINE [Concomitant]
     Active Substance: VINCRISTINE
     Dosage: 2 MG, DAILY
     Dates: start: 20230515, end: 20230515
  13. VINCRISTINE [Concomitant]
     Active Substance: VINCRISTINE
     Dosage: 2 MG, DAILY
     Dates: start: 20230518
  14. VINCRISTINE [Concomitant]
     Active Substance: VINCRISTINE
     Dosage: 2 MG, DAILY
     Dates: start: 20230519
  15. IDARUBICIN [Concomitant]
     Active Substance: IDARUBICIN
     Dosage: 10 MG, DAILY
     Dates: start: 20230519
  16. PEGASPARGASE [Concomitant]
     Active Substance: PEGASPARGASE
     Dosage: 3750 IU, DAILY
     Dates: start: 20230515, end: 20230515
  17. PEGASPARGASE [Concomitant]
     Active Substance: PEGASPARGASE
     Dates: start: 20230520
  18. CYCLOPHOSPHAMIDE [Concomitant]
     Active Substance: CYCLOPHOSPHAMIDE
     Dosage: 400 MG, 2X/DAY
     Dates: start: 20230515, end: 20230517
  19. PIRARUBICIN [Concomitant]
     Active Substance: PIRARUBICIN
     Dosage: 30 MG, DAILY
     Dates: start: 20230518, end: 20230521
  20. CYTARABINE [Concomitant]
     Active Substance: CYTARABINE
     Dates: start: 20230516, end: 20230517

REACTIONS (1)
  - Neurotoxicity [Recovering/Resolving]

NARRATIVE: CASE EVENT DATE: 20230821
